FAERS Safety Report 7466314-6 (Version None)
Quarter: 2011Q2

REPORT INFORMATION
  Report Type: 
  Country: None (occurrence: None)
  Receive Date: 20110509
  Receipt Date: 20100713
  Transmission Date: 20111010
  Serious: No
  Sender: FDA-Public Use
  Company Number: US-ALEXION-A201000822

PATIENT
  Sex: Female

DRUGS (1)
  1. SOLIRIS [Suspect]
     Indication: PAROXYSMAL NOCTURNAL HAEMOGLOBINURIA
     Dosage: 900 MG, Q2W
     Route: 042
     Dates: start: 20090305

REACTIONS (10)
  - TONGUE DISCOLOURATION [None]
  - DIARRHOEA [None]
  - PYREXIA [None]
  - WEIGHT INCREASED [None]
  - CHILLS [None]
  - VOMITING [None]
  - INSOMNIA [None]
  - ANAEMIA [None]
  - ABDOMINAL DISTENSION [None]
  - FEELING HOT [None]
